FAERS Safety Report 6836631-9 (Version None)
Quarter: 2010Q3

REPORT INFORMATION
  Report Type: 
  Country: None (occurrence: None)
  Receive Date: 20100713
  Receipt Date: 20100709
  Transmission Date: 20110219
  Serious: Yes (Life-Threatening)
  Sender: FDA-Public Use
  Company Number: PHHY2010US38629

PATIENT
  Sex: Female

DRUGS (3)
  1. EXTAVIA [Suspect]
     Indication: MULTIPLE SCLEROSIS
     Dosage: 0.0625MG,QOD
     Route: 058
     Dates: start: 20100530, end: 20100610
  2. TOBRAMAXIN [Concomitant]
     Dosage: 250 MG, QHS
  3. MAXALT [Concomitant]
     Dosage: 10 MG, PRN

REACTIONS (3)
  - FEELING ABNORMAL [None]
  - MALAISE [None]
  - NASAL CONGESTION [None]
